FAERS Safety Report 13363035 (Version 1)
Quarter: 2017Q1

REPORT INFORMATION
  Report Type: Spontaneous
  Country: US (occurrence: US)
  Receive Date: 20170322
  Receipt Date: 20170322
  Transmission Date: 20170429
  Serious: Yes (Disabling, Other)
  Sender: FDA-Public Use
  Company Number: None

PATIENT
  Age: 3 Year
  Sex: Male
  Weight: 14.4 kg

DRUGS (2)
  1. CHILDREN^S VITAMINS [Concomitant]
  2. NORDITROPIN [Suspect]
     Active Substance: SOMATROPIN
     Indication: GROWTH HORMONE DEFICIENCY
     Dosage: ?          QUANTITY:25 INJECTION(S);?
     Route: 030
     Dates: start: 20150914

REACTIONS (4)
  - Drug hypersensitivity [None]
  - Reaction to drug excipients [None]
  - Abnormal behaviour [None]
  - Mental disorder [None]

NARRATIVE: CASE EVENT DATE: 20150920
